FAERS Safety Report 6386276-2 (Version None)
Quarter: 2009Q3

REPORT INFORMATION
  Report Type: 
  Country: None (occurrence: None)
  Receive Date: 20090929
  Receipt Date: 20090629
  Transmission Date: 20100115
  Serious: Yes (Other)
  Sender: FDA-Public Use
  Company Number: 285711

PATIENT
  Age: 78 Year
  Sex: Male

DRUGS (9)
  1. LUCENTIS [Suspect]
     Indication: MACULAR DEGENERATION
     Dosage: 5 MG, INTRAVITREAL
     Dates: start: 20080606, end: 20090512
  2. FLOMAX [Concomitant]
  3. CENTRUM SILVER (MINERALS NOS. MULTIVITAMINS NOS) [Concomitant]
  4. OCUVITE PRESERVISION (ASCORBIC ACID, BETA CAROTENE, COPPER, VITAMIN E, [Concomitant]
  5. PLAVIX [Concomitant]
  6. PRILOSEC [Concomitant]
  7. NITROGLYCERIN [Concomitant]
  8. ASPIRIN [Concomitant]
  9. TRICOR [Concomitant]

REACTIONS (1)
  - ENDOPHTHALMITIS [None]
